FAERS Safety Report 15565929 (Version 2)
Quarter: 2018Q4

REPORT INFORMATION
  Report Type: Spontaneous
  Country: JP (occurrence: JP)
  Receive Date: 20181030
  Receipt Date: 20181122
  Transmission Date: 20190205
  Serious: Yes (Hospitalization)
  Sender: FDA-Public Use
  Company Number: JP-GLAXOSMITHKLINE-JP2018JPN194160

PATIENT

DRUGS (2)
  1. EXCEGRAN [Concomitant]
     Active Substance: ZONISAMIDE
     Indication: RESTLESS LEGS SYNDROME
     Dosage: 50 MG, QD(BEFORE BEDTIME)
  2. REQUIP [Suspect]
     Active Substance: ROPINIROLE HYDROCHLORIDE
     Indication: RESTLESS LEGS SYNDROME
     Dosage: 0.25 MG, QD(BEFORE BEDTIME)
     Route: 048

REACTIONS (2)
  - Back pain [Unknown]
  - Product use in unapproved indication [Unknown]
